FAERS Safety Report 13949166 (Version 1)
Quarter: 2017Q3

REPORT INFORMATION
  Report Type: Report from Study
  Country: US (occurrence: US)
  Receive Date: 20170908
  Receipt Date: 20170908
  Transmission Date: 20171128
  Serious: Yes (Hospitalization)
  Sender: FDA-Public Use
  Company Number: US-ASTELLAS-2017US035291

PATIENT
  Age: 63 Year
  Sex: Female

DRUGS (15)
  1. CALCIUM [Concomitant]
     Active Substance: CALCIUM
     Indication: PRODUCT USED FOR UNKNOWN INDICATION
     Dosage: UNK UNK, UNKNOWN FREQ.
     Route: 065
  2. ERLOTINIB [Suspect]
     Active Substance: ERLOTINIB
     Indication: ADENOCARCINOMA
     Route: 048
     Dates: start: 2016
  3. ARMOUR THYROID [Concomitant]
     Active Substance: THYROID, PORCINE
     Indication: PRODUCT USED FOR UNKNOWN INDICATION
     Dosage: 60 MG, ONCE DAILY (HAS BEEN ON THIS MEDICATION FOR 20YEAR)
     Route: 048
  4. VITAMIN A                          /00056001/ [Concomitant]
     Active Substance: RETINOL
     Indication: PRODUCT USED FOR UNKNOWN INDICATION
     Dosage: UNK UNK, UNKNOWN FREQ.
     Route: 065
  5. ERLOTINIB [Suspect]
     Active Substance: ERLOTINIB
     Indication: LUNG NEOPLASM MALIGNANT
     Route: 048
     Dates: start: 20150812
  6. ERLOTINIB [Suspect]
     Active Substance: ERLOTINIB
     Indication: EGFR GENE MUTATION
  7. FAMOTIDINE. [Concomitant]
     Active Substance: FAMOTIDINE
     Indication: GASTROOESOPHAGEAL REFLUX DISEASE
     Dosage: 20 MG, ONCE DAILY (10-12 HOURS AFTER TAKING TARCEVA)
     Route: 048
     Dates: start: 20150815
  8. METHOCARBAMOL. [Concomitant]
     Active Substance: METHOCARBAMOL
     Indication: PRODUCT USED FOR UNKNOWN INDICATION
     Dosage: UNK, UNKNOWN FREQ.
     Route: 065
  9. ERLOTINIB [Suspect]
     Active Substance: ERLOTINIB
     Indication: NON-SMALL CELL LUNG CANCER
     Route: 048
     Dates: start: 20150823
  10. ERLOTINIB [Suspect]
     Active Substance: ERLOTINIB
     Indication: LUNG CARCINOMA CELL TYPE UNSPECIFIED STAGE IV
     Route: 048
     Dates: start: 20170815
  11. LEXAPRO [Concomitant]
     Active Substance: ESCITALOPRAM OXALATE
     Indication: PRODUCT USED FOR UNKNOWN INDICATION
     Dosage: UNK UNK, UNKNOWN FREQ.
     Route: 065
  12. MONISTAT [Suspect]
     Active Substance: MICONAZOLE NITRATE
     Indication: FUNGAL INFECTION
     Dosage: UNK UNK, UNKNOWN FREQ.
     Route: 061
  13. METRONIDAZOLE. [Concomitant]
     Active Substance: METRONIDAZOLE
     Indication: PRODUCT USED FOR UNKNOWN INDICATION
     Dosage: UNK UNK, UNKNOWN FREQ.
     Route: 065
  14. ARMOUR THYROID [Concomitant]
     Active Substance: THYROID, PORCINE
     Dosage: 90 MG, ONCE DAILY (HAS BEEN ON THIS MEDICATION FOR 20YEARS)
     Route: 048
     Dates: start: 2017
  15. MYLANTA [Concomitant]
     Active Substance: ALUMINUM HYDROXIDE\DIMETHICONE\MAGNESIUM HYDROXIDE
     Indication: PRODUCT USED FOR UNKNOWN INDICATION
     Dosage: UNK UNK, UNKNOWN FREQ.
     Route: 065

REACTIONS (30)
  - Malaise [Recovered/Resolved]
  - Dyspepsia [Unknown]
  - Dyspnoea [Unknown]
  - Erythema [Recovered/Resolved]
  - Nephrolithiasis [Recovered/Resolved]
  - Constipation [Unknown]
  - Diarrhoea [Unknown]
  - Anxiety [Unknown]
  - Alopecia [Unknown]
  - Diarrhoea [Recovering/Resolving]
  - Rash [Not Recovered/Not Resolved]
  - Pain [Recovered/Resolved]
  - Gastrooesophageal reflux disease [Not Recovered/Not Resolved]
  - Hot flush [Unknown]
  - Dry skin [Unknown]
  - Eczema [Unknown]
  - Fungal infection [Not Recovered/Not Resolved]
  - Skin exfoliation [Recovered/Resolved]
  - Weight decreased [Not Recovered/Not Resolved]
  - Rosacea [Unknown]
  - Stress [Unknown]
  - Ocular hyperaemia [Not Recovered/Not Resolved]
  - Pruritus [Unknown]
  - Fatigue [Unknown]
  - Eye pain [Not Recovered/Not Resolved]
  - Alopecia [Recovered/Resolved]
  - Vomiting [Unknown]
  - Diarrhoea [Unknown]
  - Skin discolouration [Recovered/Resolved]
  - Nausea [Unknown]

NARRATIVE: CASE EVENT DATE: 20151202
